FAERS Safety Report 8425404-1 (Version None)
Quarter: 2012Q2

REPORT INFORMATION
  Report Type: 
  Country: None (occurrence: None)
  Receive Date: 20120611
  Receipt Date: 20120603
  Transmission Date: 20120825
  Serious: No
  Sender: FDA-Public Use
  Company Number: US-BAYER-2012-056752

PATIENT

DRUGS (3)
  1. ALEVE (CAPLET) [Suspect]
     Route: 048
  2. ZANTAC [Concomitant]
  3. SKELAXIN [Concomitant]

REACTIONS (2)
  - NAUSEA [None]
  - MALAISE [None]
